FAERS Safety Report 18650326 (Version 2)
Quarter: 2021Q1

REPORT INFORMATION
  Report Type: Spontaneous
  Country: FR (occurrence: FR)
  Receive Date: 20201222
  Receipt Date: 20210105
  Transmission Date: 20210419
  Serious: Yes (Death, Other)
  Sender: FDA-Public Use
  Company Number: FR-FERRINGPH-2020FE09048

PATIENT

DRUGS (2)
  1. PROPESS [Suspect]
     Active Substance: DINOPROSTONE
     Indication: CERVICAL DILATATION
     Dosage: IN TOTAL
     Route: 064
     Dates: start: 20120806, end: 20120807
  2. NUBAIN [Suspect]
     Active Substance: NALBUPHINE HYDROCHLORIDE
     Indication: LABOUR PAIN
     Dosage: IN TOTAL
     Route: 064
     Dates: start: 20120806, end: 20120806

REACTIONS (1)
  - Foetal death [Fatal]

NARRATIVE: CASE EVENT DATE: 20120807
